FAERS Safety Report 4480436-3 (Version None)
Quarter: 2004Q4

REPORT INFORMATION
  Report Type: 
  Country: None (occurrence: None)
  Receive Date: 20041018
  Receipt Date: 20040930
  Transmission Date: 20050328
  Serious: Yes (Disabling)
  Sender: FDA-Public Use
  Company Number: DSA_25118_2004

PATIENT
  Age: 50 Year
  Sex: Male
  Weight: 68.0396 kg

DRUGS (4)
  1. ATIVAN [Suspect]
     Indication: DEPRESSION
     Dosage: 4 MG Q DAY PO
     Route: 048
  2. ATIVAN [Suspect]
     Indication: SLEEP DISORDER
     Dosage: 4 MG Q DAY PO
     Route: 048
  3. PAXIL [Concomitant]
  4. WELLBUTRIN [Concomitant]

REACTIONS (4)
  - DECREASED ACTIVITY [None]
  - JAUNDICE [None]
  - OEDEMA PERIPHERAL [None]
  - PAIN IN EXTREMITY [None]
